FAERS Safety Report 5112614-4 (Version None)
Quarter: 2006Q3

REPORT INFORMATION
  Report Type: 
  Country: None (occurrence: None)
  Receive Date: 20060922
  Receipt Date: 20060915
  Transmission Date: 20061208
  Serious: Yes (Other)
  Sender: FDA-Public Use
  Company Number: BR-ROCHE-463742

PATIENT
  Age: 40 Year
  Sex: Male
  Weight: 98 kg

DRUGS (1)
  1. XENICAL [Suspect]
     Indication: DRUG USE FOR UNKNOWN INDICATION
     Dosage: THE PATIENT INTERRUPTED TREATMENT FOR A FEW DAYS DURING JUNE-JULY 2006.
     Route: 048
     Dates: start: 20060615, end: 20060715

REACTIONS (1)
  - HAEMATOCHEZIA [None]
